FAERS Safety Report 5642843-2 (Version None)
Quarter: 2008Q1

REPORT INFORMATION
  Report Type: 
  Country: None (occurrence: None)
  Receive Date: 20080228
  Receipt Date: 20080220
  Transmission Date: 20080703
  Serious: Yes (Disabling, Other)
  Sender: FDA-Public Use
  Company Number: PHBS2007BR16665

PATIENT
  Age: 55 Year
  Sex: Female
  Weight: 75 kg

DRUGS (5)
  1. PARLODEL [Suspect]
     Dosage: 10 MG/DAY
     Route: 048
     Dates: start: 20040101, end: 20060101
  2. PARLODEL [Suspect]
     Dosage: 5 MG/DAY
     Route: 048
     Dates: start: 20070101
  3. LOSARTAN POTASSIUM AND HYDROCHLOROTHIAZIDE [Concomitant]
     Indication: HYPERTENSION
     Dosage: 50/25 MG
     Dates: start: 20071101
  4. GINKGO BILOBA [Concomitant]
     Dosage: UNK, QD
     Dates: start: 20071101
  5. DOSTINEX [Suspect]

REACTIONS (15)
  - ALOPECIA [None]
  - DERMATITIS ALLERGIC [None]
  - DYSPNOEA [None]
  - FATIGUE [None]
  - FEELING OF BODY TEMPERATURE CHANGE [None]
  - FLUID RETENTION [None]
  - HYPERHIDROSIS [None]
  - INSOMNIA [None]
  - MALAISE [None]
  - MEMORY IMPAIRMENT [None]
  - NAUSEA [None]
  - OEDEMA PERIPHERAL [None]
  - PRURITUS GENERALISED [None]
  - RASH [None]
  - SOMNOLENCE [None]
